FAERS Safety Report 5167421-3 (Version None)
Quarter: 2006Q4

REPORT INFORMATION
  Report Type: 
  Country: None (occurrence: None)
  Receive Date: 20061130
  Receipt Date: 20061117
  Transmission Date: 20070319
  Serious: Yes (Other)
  Sender: FDA-Public Use
  Company Number: 2006144709

PATIENT
  Age: 70 Year
  Sex: Female

DRUGS (3)
  1. SULPERAZON (SULBACTAM, CEFOPERAZONE) [Suspect]
     Indication: PROPHYLAXIS
     Dosage: INTRAVENOUS
     Route: 042
  2. MIRACLID (ULINASTATIN) [Concomitant]
  3. HYPNOTICS AND SEDATIVES (HYPNOTICS AND SEDATIVES) [Concomitant]

REACTIONS (5)
  - CARDIOMYOPATHY [None]
  - HAEMOLYTIC ANAEMIA [None]
  - LYMPHOCYTE STIMULATION TEST POSITIVE [None]
  - RENAL FAILURE [None]
  - RHABDOMYOLYSIS [None]
